FAERS Safety Report 5832590-6 (Version None)
Quarter: 2008Q3

REPORT INFORMATION
  Report Type: 
  Country: None (occurrence: None)
  Receive Date: 20080804
  Receipt Date: 20080722
  Transmission Date: 20090109
  Serious: Yes (Other)
  Sender: FDA-Public Use
  Company Number: PHEH2008US06563

PATIENT
  Sex: Male

DRUGS (1)
  1. EXELON [Suspect]
     Dosage: 9.5 MG, QD
     Route: 062

REACTIONS (5)
  - DRUG EFFECT DECREASED [None]
  - GAIT DISTURBANCE [None]
  - HALLUCINATION [None]
  - POOR QUALITY SLEEP [None]
  - SOMNOLENCE [None]
